FAERS Safety Report 20119011 (Version 1)
Quarter: 2021Q4

REPORT INFORMATION
  Report Type: Spontaneous
  Country: CN (occurrence: None)
  Receive Date: 20211126
  Receipt Date: 20211126
  Transmission Date: 20220303
  Serious: Yes (Other)
  Sender: FDA-Public Use
  Company Number: 2021A823787

PATIENT
  Age: 28257 Day
  Sex: Male
  Weight: 87 kg

DRUGS (1)
  1. DAPAGLIFLOZIN [Suspect]
     Active Substance: DAPAGLIFLOZIN
     Indication: Diabetes mellitus
     Route: 048
     Dates: start: 20211022, end: 20211101

REACTIONS (5)
  - Genital erythema [Recovering/Resolving]
  - Genital pain [Recovering/Resolving]
  - Genital erosion [Recovering/Resolving]
  - Pruritus genital [Recovering/Resolving]
  - Dysuria [Recovering/Resolving]

NARRATIVE: CASE EVENT DATE: 20211101
